FAERS Safety Report 7402934-2 (Version None)
Quarter: 2011Q2

REPORT INFORMATION
  Report Type: 
  Country: None (occurrence: None)
  Receive Date: 20110408
  Receipt Date: 20110328
  Transmission Date: 20111010
  Serious: No
  Sender: FDA-Public Use
  Company Number: US-JNJFOC-20110312435

PATIENT
  Sex: Male
  Weight: 83.92 kg

DRUGS (2)
  1. DURAGESIC [Suspect]
     Indication: FIBROMYALGIA
     Dosage: EVERY ONE OR TWO DAYS
     Route: 062
  2. DURAGESIC [Suspect]
     Indication: BURSITIS
     Dosage: EVERY ONE OR TWO DAYS
     Route: 062

REACTIONS (3)
  - INAPPROPRIATE SCHEDULE OF DRUG ADMINISTRATION [None]
  - PRODUCT QUALITY ISSUE [None]
  - DRUG EFFECT DECREASED [None]
